FAERS Safety Report 9320806 (Version 1)
Quarter: 2013Q2

REPORT INFORMATION
  Report Type: Spontaneous
  Country: US (occurrence: None)
  Receive Date: 20130529
  Receipt Date: 20130529
  Transmission Date: 20140414
  Serious: Yes (Hospitalization)
  Sender: FDA-Public Use
  Company Number: None

PATIENT
  Age: 63 Year
  Sex: Female
  Weight: 73 kg

DRUGS (21)
  1. ALEMTUZUMAB [Suspect]
     Indication: MULTIPLE SCLEROSIS
     Route: 042
     Dates: start: 20130116, end: 20130118
  2. ACYCLOVIR [Concomitant]
  3. AMPYRA(DALFAMPRIDINE) [Concomitant]
  4. BACLOFEN [Concomitant]
  5. BACTRO, DS(TRIMETHOPRIM AND SULFAMETHOXAZOLE) [Concomitant]
  6. CARBAMAZEPINE [Concomitant]
  7. CELEBREX(CELECOXIB) [Concomitant]
  8. DIAZEPAM [Concomitant]
  9. HYDROCODONE-ACETAMINOPHEN [Concomitant]
  10. LEXAPRO(ESCITALOPRAM) [Concomitant]
  11. LYRICA(PREGABALIN) [Concomitant]
  12. LIPITOR(STATINS) [Concomitant]
  13. OXYBUTYNIN [Concomitant]
  14. PROVIGIL (MODAFINIL) [Concomitant]
  15. TEMAZEPAM [Concomitant]
  16. TIZANIDINE [Concomitant]
  17. TRAMADOL [Concomitant]
  18. HYDROCHLORTHIAZIDE [Concomitant]
  19. LIPITOR(ATORVASTATIN) [Concomitant]
  20. VITAMIN B 12 [Concomitant]
  21. VITAMIN D [Concomitant]

REACTIONS (8)
  - Syncope [None]
  - Loss of consciousness [None]
  - Traumatic haemorrhage [None]
  - Laceration [None]
  - Hyponatraemia [None]
  - Hypotension [None]
  - Anaemia [None]
  - Cerebral haemorrhage [None]
